FAERS Safety Report 10098582 (Version 1)
Quarter: 2014Q2

REPORT INFORMATION
  Report Type: Spontaneous
  Country: US (occurrence: None)
  Receive Date: 20140422
  Receipt Date: 20140422
  Transmission Date: 20141212
  Serious: No
  Sender: FDA-Public Use
  Company Number: None

PATIENT
  Sex: 0

DRUGS (2)
  1. IRBESARTAN/HYDROCHLOROTHIAZIDE [Suspect]
  2. LOSARTAN/HYDROCHLOROTHIAZIDE [Suspect]

REACTIONS (2)
  - Product label issue [None]
  - Product packaging issue [None]
